FAERS Safety Report 22259970 (Version 2)
Quarter: 2023Q2

REPORT INFORMATION
  Report Type: Spontaneous
  Country: ES (occurrence: None)
  Receive Date: 20230427
  Receipt Date: 20230505
  Transmission Date: 20230722
  Serious: Yes (Hospitalization)
  Sender: FDA-Public Use
  Company Number: 2023A098171

PATIENT
  Age: 74 Year
  Sex: Male

DRUGS (9)
  1. CANDESARTAN CILEXETIL\HYDROCHLOROTHIAZIDE [Suspect]
     Active Substance: CANDESARTAN CILEXETIL\HYDROCHLOROTHIAZIDE
     Indication: Essential hypertension
     Dosage: 16/12.5 MILLIGRAM
     Route: 048
     Dates: start: 20220528
  2. ATACAND [Suspect]
     Active Substance: CANDESARTAN CILEXETIL
     Indication: Blood pressure increased
     Dosage: 8 MILLIGRAM
     Route: 048
     Dates: start: 20220528
  3. CRESTOR [Suspect]
     Active Substance: ROSUVASTATIN CALCIUM
     Indication: Product used for unknown indication
     Dosage: CE
     Route: 048
     Dates: start: 20220530
  4. BRINTELLIX [Suspect]
     Active Substance: VORTIOXETINE HYDROBROMIDE
     Indication: Depression
     Dosage: CE
     Route: 048
     Dates: start: 20190710
  5. ASPIRIN [Suspect]
     Active Substance: ASPIRIN
     Indication: Borderline glaucoma
     Dosage: DE
     Route: 048
     Dates: start: 20220723
  6. CARBAMAZEPINE [Suspect]
     Active Substance: CARBAMAZEPINE
     Indication: Epilepsy
     Dosage: 200 MILLIGRAM
     Route: 048
     Dates: start: 20210823
  7. TIMOLOL MALEATE [Suspect]
     Active Substance: TIMOLOL MALEATE
     Indication: Liver disorder
     Route: 047
     Dates: start: 20220722
  8. CHOLECALCIFEROL [Suspect]
     Active Substance: CHOLECALCIFEROL
     Indication: Vitamin D deficiency
     Dosage: 25000.0 IU/2.5ML
     Route: 048
     Dates: start: 20220322
  9. CYANOCOBALAMIN\FOLIC ACID [Concomitant]
     Active Substance: CYANOCOBALAMIN\FOLIC ACID
     Indication: Syncope
     Dosage: 400/2 UG, 1.0 COMP DE
     Route: 048
     Dates: start: 20151020

REACTIONS (1)
  - Hyponatraemia [Recovering/Resolving]

NARRATIVE: CASE EVENT DATE: 20230404
